FAERS Safety Report 4424338-7 (Version None)
Quarter: 2004Q3

REPORT INFORMATION
  Report Type: 
  Country: None (occurrence: None)
  Receive Date: 20040809
  Receipt Date: 20040726
  Transmission Date: 20050211
  Serious: Yes (Other)
  Sender: FDA-Public Use
  Company Number: 2004051193

PATIENT

DRUGS (2)
  1. NEURONTIN [Suspect]
     Indication: ILL-DEFINED DISORDER
  2. WARFARIN (WARFARIN) [Suspect]
     Indication: ILL-DEFINED DISORDER

REACTIONS (2)
  - ANAEMIA [None]
  - DRUG INTERACTION [None]
